FAERS Safety Report 5211749-5 (Version None)
Quarter: 2007Q1

REPORT INFORMATION
  Report Type: 
  Country: None (occurrence: None)
  Receive Date: 20070116
  Receipt Date: 20070102
  Transmission Date: 20070707
  Serious: Yes (Other)
  Sender: FDA-Public Use
  Company Number: S07-GER-00104-01

PATIENT
  Age: 24 Year
  Sex: Female

DRUGS (2)
  1. CITALOPRAM HYDROBROMIDE [Suspect]
     Dosage: 20 MD QD PO
     Route: 048
     Dates: start: 20050217
  2. MICROGYNON [Concomitant]

REACTIONS (1)
  - HAEMORRHAGE [None]
